FAERS Safety Report 11421906 (Version 2)
Quarter: 2015Q4

REPORT INFORMATION
  Report Type: Spontaneous
  Country: LU (occurrence: LU)
  Receive Date: 20150827
  Receipt Date: 20151020
  Transmission Date: 20160304
  Serious: Yes (Hospitalization)
  Sender: FDA-Public Use
  Company Number: LU-ABBVIE-15K-098-1450274-00

PATIENT
  Age: 42 Year
  Sex: Male

DRUGS (3)
  1. HUMIRA [Suspect]
     Active Substance: ADALIMUMAB
     Indication: ANKYLOSING SPONDYLITIS
     Route: 058
     Dates: start: 201505, end: 201508
  2. DICLOFENAC [Concomitant]
     Active Substance: DICLOFENAC
     Indication: PRODUCT USED FOR UNKNOWN INDICATION
     Dosage: 1 WHEN NEEDED, MAXIMUM 2 PER DAY
  3. AMIODARONE [Concomitant]
     Active Substance: AMIODARONE
     Indication: PRODUCT USED FOR UNKNOWN INDICATION

REACTIONS (20)
  - Antiphospholipid syndrome [Recovering/Resolving]
  - Sinus disorder [Unknown]
  - Paraesthesia [Unknown]
  - Beta-2 glycoprotein antibody positive [Unknown]
  - Nervousness [Unknown]
  - Testicular pain [Unknown]
  - Pulmonary valve incompetence [Unknown]
  - Carotid artery thrombosis [Unknown]
  - Arteriosclerosis [Unknown]
  - Transient ischaemic attack [Unknown]
  - Vascular calcification [Unknown]
  - Arterial occlusive disease [Unknown]
  - Hypoaesthesia [Unknown]
  - Cerebrovascular accident [Unknown]
  - Endothelial dysfunction [Unknown]
  - Heart valve incompetence [Unknown]
  - Arterial stenosis [Unknown]
  - Paranasal sinus mucosal hypertrophy [Unknown]
  - Nodule [Unknown]
  - Aphasia [Unknown]

NARRATIVE: CASE EVENT DATE: 201508
